FAERS Safety Report 10301967 (Version 1)
Quarter: 2014Q3

REPORT INFORMATION
  Report Type: Spontaneous
  Country: US (occurrence: None)
  Receive Date: 20140709
  Receipt Date: 20140709
  Transmission Date: 20150326
  Serious: Yes (Other)
  Sender: FDA-Public Use
  Company Number: 2014TR000079

PATIENT
  Age: 25 Year
  Sex: Female
  Weight: 42 kg

DRUGS (2)
  1. CYSTARAN (MERCAPAMINE HYDROCHLORIDE) [Concomitant]
  2. PROCYSBI DELAYED-RELEASE [Suspect]
     Active Substance: CYSTEAMINE BITARTRATE
     Indication: AMINO ACID LEVEL ABNORMAL
     Route: 048
     Dates: start: 2013, end: 201406

REACTIONS (1)
  - Malaise [None]
